FAERS Safety Report 6935955-4 (Version None)
Quarter: 2010Q3

REPORT INFORMATION
  Report Type: 
  Country: None (occurrence: None)
  Receive Date: 20100823
  Receipt Date: 20100809
  Transmission Date: 20110219
  Serious: Yes (Death, Life-Threatening, Hospitalization, Other)
  Sender: FDA-Public Use
  Company Number: NL-ELI_LILLY_AND_COMPANY-NL201007003079

PATIENT
  Age: 77 Year
  Sex: Male

DRUGS (4)
  1. EFFIENT [Suspect]
     Indication: PERCUTANEOUS CORONARY INTERVENTION
     Dosage: 60 MG, LOADING DOSE
     Route: 065
     Dates: start: 20100705
  2. REOPRO [Concomitant]
     Dosage: UNK, UNKNOWN
     Route: 065
     Dates: start: 20100705
  3. FONDAPARINUX SODIUM [Concomitant]
     Dosage: 2.5 MG, UNKNOWN
     Route: 058
     Dates: start: 20100705
  4. CLOPIDOGREL [Concomitant]
     Dosage: 75 MG, UNKNOWN
     Route: 048
     Dates: start: 20100705

REACTIONS (3)
  - CEREBELLAR HAEMORRHAGE [None]
  - CEREBRAL HAEMORRHAGE [None]
  - MEDICATION ERROR [None]
